FAERS Safety Report 7582809-9 (Version None)
Quarter: 2011Q2

REPORT INFORMATION
  Report Type: 
  Country: None (occurrence: None)
  Receive Date: 20110630
  Receipt Date: 20110616
  Transmission Date: 20111010
  Serious: Yes (Other)
  Sender: FDA-Public Use
  Company Number: GB-MYLANLABS-2011S1012478

PATIENT
  Age: 41 Year
  Sex: Male

DRUGS (5)
  1. CLOZAPINE [Suspect]
     Indication: SCHIZOPHRENIA
     Dates: start: 19950824
  2. SULPRIDE [Suspect]
     Indication: AFFECTIVE DISORDER
     Dates: start: 20070401
  3. MULTI-VITAMIN [Concomitant]
     Indication: PRODUCT USED FOR UNKNOWN INDICATION
     Dates: start: 20070401
  4. LITHIUM CHLORIDE [Concomitant]
     Indication: DEPRESSED MOOD
     Dates: start: 20070401
  5. SERTRALINE HYDROCHLORIDE [Suspect]
     Indication: DEPRESSED MOOD
     Dates: start: 20070401

REACTIONS (4)
  - FALL [None]
  - VISUAL IMPAIRMENT [None]
  - HEADACHE [None]
  - LOSS OF CONSCIOUSNESS [None]
